FAERS Safety Report 11651575 (Version 1)
Quarter: 2015Q4

REPORT INFORMATION
  Report Type: Spontaneous
  Country: US (occurrence: None)
  Receive Date: 20151021
  Receipt Date: 20151021
  Transmission Date: 20160304
  Serious: Yes (Disabling)
  Sender: FDA-Public Use
  Company Number: None

PATIENT
  Age: 42 Year
  Sex: Female
  Weight: 72.58 kg

DRUGS (3)
  1. VITAMIN MULTI DAILY [Concomitant]
  2. CIPROFLOXACIN. [Suspect]
     Active Substance: CIPROFLOXACIN
     Indication: URINARY TRACT INFECTION
     Route: 048
     Dates: start: 20140318, end: 20140322
  3. LEVOTHYROXIN [Concomitant]
     Active Substance: LEVOTHYROXINE

REACTIONS (5)
  - Chest pain [None]
  - Tendon disorder [None]
  - Urinary tract infection [None]
  - Gait disturbance [None]
  - Arthralgia [None]

NARRATIVE: CASE EVENT DATE: 20140318
